FAERS Safety Report 6370264-6 (Version None)
Quarter: 2009Q3

REPORT INFORMATION
  Report Type: 
  Country: None (occurrence: None)
  Receive Date: 20090918
  Receipt Date: 20090908
  Transmission Date: 20100115
  Serious: Yes (Hospitalization)
  Sender: FDA-Public Use
  Company Number: 2009010212

PATIENT
  Weight: 136.0791 kg

DRUGS (2)
  1. ACTIQ [Suspect]
     Indication: NECK PAIN
     Dosage: 3000 MCG (600 MCG, 5 IN 1 D), BUCCAL; 4800 MCG (800 MCG, 6 IN 1 D), BU
     Route: 002
  2. AVINZA [Concomitant]

REACTIONS (1)
  - STAPHYLOCOCCAL INFECTION [None]
